FAERS Safety Report 21801786 (Version 2)
Quarter: 2023Q1

REPORT INFORMATION
  Report Type: Spontaneous
  Country: IT (occurrence: IT)
  Receive Date: 20221230
  Receipt Date: 20230104
  Transmission Date: 20230418
  Serious: Yes (Death, Hospitalization, Other)
  Sender: FDA-Public Use
  Company Number: IT-BIOVITRUM-2022IT15183

PATIENT
  Sex: Male

DRUGS (29)
  1. UNSPECIFIED INGREDIENT [Suspect]
     Active Substance: UNSPECIFIED INGREDIENT
     Indication: Product used for unknown indication
     Dosage: 10 MG/MQ/DAY (3 MG INTO 2/DAY) TAPERING UNTIL 04/DEC/22 WHEN THE DOSE WAS RE ADJUSTED TO 10 MG/MQ/DA
     Dates: start: 20220809, end: 20220818
  2. GAMIFANT [Suspect]
     Active Substance: EMAPALUMAB-LZSG
     Indication: Product used for unknown indication
     Dosage: PATIENT GLOBALLY RECEIVED 6 INFUSIONS (DOSE 3 MG/KG, TWO TIMES PER WEEK
     Dates: start: 20221110, end: 20221128
  3. ANAKINRA [Suspect]
     Active Substance: ANAKINRA
     Indication: Familial haemophagocytic lymphohistiocytosis
     Dosage: 100 MG, QD
     Dates: start: 20221004, end: 20221027
  4. AVIBACTAM SODIUM\CEFTAZIDIME [Concomitant]
     Active Substance: AVIBACTAM SODIUM\CEFTAZIDIME
     Dosage: 1 G, QD
     Dates: start: 20221018, end: 20221031
  5. CYCLOSPORINE [Concomitant]
     Active Substance: CYCLOSPORINE
     Dosage: 70 MG, QD
     Dates: start: 20220809, end: 20221004
  6. CASPOFUNGIN [Concomitant]
     Active Substance: CASPOFUNGIN
     Dosage: UNK
     Dates: start: 20220930, end: 20221216
  7. RAMIPRIL [Concomitant]
     Active Substance: RAMIPRIL
     Dosage: 1.25 MG, QD
     Dates: start: 20220809, end: 20221211
  8. BACTRIM [Concomitant]
     Active Substance: SULFAMETHOXAZOLE\TRIMETHOPRIM
     Dosage: 50 MG, 2 PER DAY FOR 3 DAYS
     Dates: start: 20220809, end: 20221216
  9. FOSFOMYCIN [Concomitant]
     Active Substance: FOSFOMYCIN
     Dosage: 1 G, QD
     Dates: start: 20221003, end: 20221103
  10. ACYCLOVIR [Concomitant]
     Active Substance: ACYCLOVIR
     Dosage: 160 MG
     Dates: start: 20220809, end: 20221216
  11. AMIKACIN [Concomitant]
     Active Substance: AMIKACIN
     Dosage: 400 MG, QD
     Dates: start: 20221018, end: 20221031
  12. AMIKACIN [Concomitant]
     Active Substance: AMIKACIN
     Dosage: 400 MG, QD
     Dates: start: 20221004, end: 20221012
  13. CLONAZEPAM [Concomitant]
     Active Substance: CLONAZEPAM
     Dosage: 5 GTT
     Dates: start: 20221004, end: 20221216
  14. TIGECYCLINE [Concomitant]
     Active Substance: TIGECYCLINE
     Dosage: UNK
     Dates: start: 20221207, end: 20221213
  15. TIGECYCLINE [Concomitant]
     Active Substance: TIGECYCLINE
     Dosage: UNK
     Dates: start: 20221110, end: 20221116
  16. TIGECYCLINE [Concomitant]
     Active Substance: TIGECYCLINE
     Dosage: 25 MG, QD
     Dates: start: 20221017, end: 20221031
  17. TIGECYCLINE [Concomitant]
     Active Substance: TIGECYCLINE
     Dosage: UNK
     Dates: start: 20221003, end: 20221014
  18. PIPERACILLIN AND TAZOBACTAM [Concomitant]
     Active Substance: PIPERACILLIN SODIUM\TAZOBACTAM SODIUM
     Dosage: UNK
     Dates: start: 20221118, end: 20221216
  19. PIPERACILLIN AND TAZOBACTAM [Concomitant]
     Active Substance: PIPERACILLIN SODIUM\TAZOBACTAM SODIUM
     Dosage: 1.7 G, QD
     Dates: start: 20220822, end: 20221004
  20. LACOSAMIDE [Concomitant]
     Active Substance: LACOSAMIDE
     Dosage: 100 MG, QD
     Dates: start: 20221004, end: 20221216
  21. MIDAZOLAM [Concomitant]
     Active Substance: MIDAZOLAM
     Dosage: UNK
     Dates: start: 20221004, end: 20221214
  22. AMPHOTERICIN B [Concomitant]
     Active Substance: AMPHOTERICIN B
     Dosage: 60 MG, QOD
     Dates: start: 20220809, end: 20220929
  23. RUXOLITINIB [Concomitant]
     Active Substance: RUXOLITINIB
     Dosage: 10 MG, PER OS 2/ DAY (10.00 22.00)
     Dates: start: 20220922, end: 20221216
  24. AMLODIPINE BESYLATE [Concomitant]
     Active Substance: AMLODIPINE BESYLATE
     Dosage: 3 MG, QD
     Dates: start: 20220809, end: 20221211
  25. MEROPENEM [Concomitant]
     Active Substance: MEROPENEM
     Dosage: UNK
     Dates: start: 20221003, end: 20221117
  26. MEROPENEM [Concomitant]
     Active Substance: MEROPENEM
     Dosage: 500 MG, QD
     Dates: start: 20220809, end: 20220821
  27. ESOMEPRAZOLE [Concomitant]
     Active Substance: ESOMEPRAZOLE
     Dosage: 20 MG, QD
     Dates: start: 20220809, end: 20221216
  28. LEVETIRACETAM [Concomitant]
     Active Substance: LEVETIRACETAM
     Dosage: UNK
     Dates: start: 20221003, end: 20221216
  29. DAPTOMYCIN [Concomitant]
     Active Substance: DAPTOMYCIN
     Dosage: 120 MG, QD
     Dates: start: 20221102, end: 20221216

REACTIONS (5)
  - Bacterial sepsis [Fatal]
  - Hypotension [Fatal]
  - Brain death [Fatal]
  - Nervous system disorder [Fatal]
  - Generalised tonic-clonic seizure [Fatal]

NARRATIVE: CASE EVENT DATE: 20221215
